FAERS Safety Report 6446828-8 (Version None)
Quarter: 2009Q4

REPORT INFORMATION
  Report Type: 
  Country: None (occurrence: None)
  Receive Date: 20091119
  Receipt Date: 20091111
  Transmission Date: 20100525
  Serious: Yes (Other)
  Sender: FDA-Public Use
  Company Number: PHHO2009IT12935

PATIENT
  Sex: Female

DRUGS (5)
  1. CGS 20267 T30748+ [Suspect]
     Indication: BONE DENSITY DECREASED
     Dosage: UNK
     Route: 048
     Dates: start: 20070904, end: 20080520
  2. ZOLEDRONATE T29581+ [Suspect]
     Indication: BONE DENSITY DECREASED
     Dosage: UNK
     Route: 042
     Dates: start: 20070904, end: 20080520
  3. SINVACOR [Suspect]
  4. ASPIRIN [Suspect]
  5. ACEQUIDE [Suspect]

REACTIONS (1)
  - TRANSIENT ISCHAEMIC ATTACK [None]
